FAERS Safety Report 15711786 (Version 1)
Quarter: 2018Q4

REPORT INFORMATION
  Report Type: Report from Study
  Country: US (occurrence: US)
  Receive Date: 20181212
  Receipt Date: 20181212
  Transmission Date: 20190205
  Serious: Yes (Other)
  Sender: FDA-Public Use
  Company Number: US-ROCHE-2202174

PATIENT
  Age: 56 Year
  Sex: Male

DRUGS (2)
  1. ATEZOLIZUMAB. [Suspect]
     Active Substance: ATEZOLIZUMAB
     Indication: PANCREATIC NEUROENDOCRINE TUMOUR
     Route: 042
  2. BEVACIZUMAB. [Suspect]
     Active Substance: BEVACIZUMAB
     Indication: PANCREATIC NEUROENDOCRINE TUMOUR
     Route: 042

REACTIONS (2)
  - Autoimmune hepatitis [Recovered/Resolved]
  - Autoimmune hepatitis [Unknown]

NARRATIVE: CASE EVENT DATE: 20181017
